APPROVED DRUG PRODUCT: OTEZLA
Active Ingredient: APREMILAST
Strength: 30MG
Dosage Form/Route: TABLET;ORAL
Application: N205437 | Product #003 | TE Code: AB
Applicant: AMGEN INC
Approved: Mar 21, 2014 | RLD: Yes | RS: Yes | Type: RX

PATENTS:
Patent 9872854 | Expires: May 29, 2034
Patent 10092541 | Expires: May 29, 2034
Patent 10092541 | Expires: May 29, 2034
Patent 9872854 | Expires: May 29, 2034
Patent 7427638 | Expires: Feb 16, 2028
Patent 7427638*PED | Expires: Aug 16, 2028
Patent 9872854*PED | Expires: Nov 29, 2034
Patent 10092541*PED | Expires: Nov 29, 2034

EXCLUSIVITY:
Code: M-299 | Date: Jul 20, 2026
Code: NPP | Date: Apr 25, 2027
Code: ODE-248 | Date: Jul 19, 2026
Code: PED | Date: Jan 19, 2027
Code: PED | Date: Oct 25, 2027
Code: PED | Date: Jan 20, 2027